FAERS Safety Report 4328762-2 (Version None)
Quarter: 2004Q1

REPORT INFORMATION
  Report Type: 
  Country: None (occurrence: None)
  Receive Date: 20040329
  Receipt Date: 20040112
  Transmission Date: 20041129
  Serious: No
  Sender: FDA-Public Use
  Company Number: 04P-163-0246826-00

PATIENT
  Age: 61 Year
  Sex: Female
  Weight: 51.2565 kg

DRUGS (7)
  1. HUMIRA [Suspect]
     Indication: RHEUMATOID ARTHRITIS
     Dosage: 40 MG, 1 IN 2 WK, SUBCUTANEOUS
     Route: 058
     Dates: start: 20030401, end: 20031217
  2. SERETIDE MITE [Concomitant]
  3. COMBIVENT [Concomitant]
  4. CELECOXIB [Concomitant]
  5. ROSIGLITAZONE MALEATE [Concomitant]
  6. PREDNISONE [Concomitant]
  7. GABAPENTIN [Concomitant]

REACTIONS (2)
  - HERPES ZOSTER [None]
  - INFLUENZA LIKE ILLNESS [None]
